FAERS Safety Report 6387789-X (Version None)
Quarter: 2009Q4

REPORT INFORMATION
  Report Type: 
  Country: None (occurrence: None)
  Receive Date: 20091005
  Receipt Date: 20090924
  Transmission Date: 20100525
  Serious: Yes (Disabling)
  Sender: FDA-Public Use
  Company Number: BE-ROCHE-658849

PATIENT
  Sex: Male

DRUGS (1)
  1. PEGASYS [Suspect]
     Route: 058
     Dates: start: 20081001, end: 20090701

REACTIONS (3)
  - ENTEROVIRUS INFECTION [None]
  - MYELITIS [None]
  - PARAPLEGIA [None]
